FAERS Safety Report 5403702-3 (Version None)
Quarter: 2007Q3

REPORT INFORMATION
  Report Type: 
  Country: None (occurrence: None)
  Receive Date: 20070713
  Receipt Date: 20070508
  Transmission Date: 20080115
  Serious: Yes (Hospitalization)
  Sender: FDA-Public Use
  Company Number: REM_00354_2007

PATIENT
  Age: 45 Year
  Sex: Female
  Weight: 74 kg

DRUGS (5)
  1. REMODULIN [Suspect]
     Indication: PULMONARY HYPERTENSION
     Dosage: 30 NG/KG/MIN (0.03 UG/KG, 1 IN 1 MIN) INTRAVENOUS
     Route: 042
     Dates: start: 20070118
  2. OVCON (NORMENSAL) [Concomitant]
  3. TRACLEER [Concomitant]
  4. WARFARIN SODIUM [Concomitant]
  5. FLONASE [Concomitant]

REACTIONS (1)
  - CENTRAL LINE INFECTION [None]
